FAERS Safety Report 5227236-4 (Version None)
Quarter: 2007Q2

REPORT INFORMATION
  Report Type: 
  Country: None (occurrence: None)
  Receive Date: 20070202
  Receipt Date: 20070126
  Transmission Date: 20071010
  Serious: Yes (Life-Threatening, Other)
  Sender: FDA-Public Use
  Company Number: GB-GLAXOSMITHKLINE-B0456824A

PATIENT
  Age: 67 Year
  Sex: Male
  Weight: 78 kg

DRUGS (5)
  1. AMOXICILLIN AND CLAVULANATE POTASSIUM [Suspect]
     Route: 048
     Dates: start: 20060808, end: 20060815
  2. CETIRIZINE HYDROCHLORIDE [Concomitant]
     Dates: start: 20020705
  3. FLUTICASONE PROPIONATE [Concomitant]
     Dates: start: 20000224
  4. TADALAFIL [Concomitant]
     Dates: start: 20050418
  5. TRIMOVATE [Concomitant]
     Route: 061
     Dates: end: 20060825

REACTIONS (2)
  - HEPATIC FAILURE [None]
  - JAUNDICE CHOLESTATIC [None]
